FAERS Safety Report 4379898-1 (Version None)
Quarter: 2004Q2

REPORT INFORMATION
  Report Type: 
  Country: None (occurrence: None)
  Receive Date: 20040614
  Receipt Date: 20040601
  Transmission Date: 20050107
  Serious: Yes (Other)
  Sender: FDA-Public Use
  Company Number: FR-JNJFOC-20040600682

PATIENT
  Age: 70 Year
  Sex: Male

DRUGS (2)
  1. IXPRIM (TRAMADOL/APAP) TABLETS [Suspect]
     Dosage: 3 DOSE(S), ORAL
     Route: 048
  2. ANTIHYPERTENSIVES (ANTIHYPERTENSIVES) [Concomitant]

REACTIONS (4)
  - CONFUSIONAL STATE [None]
  - DELUSION [None]
  - HALLUCINATION [None]
  - NIGHTMARE [None]
